FAERS Safety Report 8634493 (Version 2)
Quarter: 2012Q4

REPORT INFORMATION
  Report Type: Spontaneous
  Country: US (occurrence: JP)
  Receive Date: 20120626
  Receipt Date: 20121123
  Transmission Date: 20130627
  Serious: Yes (Hospitalization, Other)
  Sender: FDA-Public Use
  Company Number: JP-PFIZER INC-2012149328

PATIENT
  Sex: Female

DRUGS (1)
  1. ZEMAIRA (ALPHA-1 PROTEINASE INHIBITOR (HUMAN)) [Suspect]
     Indication: ALPHA-1 ANTI-TRYPSIN DEFICIENCY
     Dosage: 0.125 mg or 0.25 mg c.a once every 3 days
     Route: 048

REACTIONS (1)
  - Intervertebral disc protrusion [Unknown]
